FAERS Safety Report 8293976 (Version 2)
Quarter: 2013Q4

REPORT INFORMATION
  Report Type: Spontaneous
  Country: GB (occurrence: GB)
  Receive Date: 20111216
  Receipt Date: 20131029
  Transmission Date: 20140711
  Serious: Yes (Hospitalization)
  Sender: FDA-Public Use
  Company Number: GB-TEVA-313045ISR

PATIENT
  Age: 67 Year
  Sex: Male

DRUGS (2)
  1. TAMSULOSIN [Suspect]
     Indication: BLADDER OBSTRUCTION
  2. CHEMOTHERAPY [Concomitant]

REACTIONS (1)
  - Transient ischaemic attack [Unknown]
